FAERS Safety Report 9728465 (Version 2)
Quarter: 2014Q1

REPORT INFORMATION
  Report Type: Spontaneous
  Country: US (occurrence: US)
  Receive Date: 20131204
  Receipt Date: 20140106
  Transmission Date: 20141002
  Serious: No
  Sender: FDA-Public Use
  Company Number: US-009507513-1312USA001745

PATIENT
  Sex: Female
  Weight: 63.49 kg

DRUGS (5)
  1. OXYTROL FOR WOMEN [Suspect]
     Indication: HYPERTONIC BLADDER
     Dosage: 1 DF, UNKNOWN
     Route: 062
     Dates: start: 201310, end: 201311
  2. FLUOXETINE [Concomitant]
     Indication: DEPRESSION
     Dosage: 20 MG, QD
  3. PROPRANOLOL HYDROCHLORIDE [Concomitant]
     Indication: HEADACHE
     Dosage: 40 MG, QD
  4. ALEVE [Concomitant]
     Indication: BACK PAIN
     Dosage: UNK, PRN
  5. ALEVE [Concomitant]
     Indication: HEADACHE

REACTIONS (3)
  - Discomfort [Recovering/Resolving]
  - Application site pruritus [Recovering/Resolving]
  - Application site erythema [Recovering/Resolving]
